FAERS Safety Report 6083013-6 (Version None)
Quarter: 2009Q1

REPORT INFORMATION
  Report Type: 
  Country: None (occurrence: None)
  Receive Date: 20090218
  Receipt Date: 20090209
  Transmission Date: 20090719
  Serious: Yes (Hospitalization, Other)
  Sender: FDA-Public Use
  Company Number: US-AMGEN-QUU332964

PATIENT
  Sex: Male

DRUGS (1)
  1. ENBREL [Suspect]
     Indication: PSORIASIS
     Route: 058
     Dates: start: 20030701

REACTIONS (4)
  - EXTRASYSTOLES [None]
  - HEART RATE INCREASED [None]
  - KNEE ARTHROPLASTY [None]
  - TUBERCULIN TEST POSITIVE [None]
